FAERS Safety Report 17357448 (Version 1)
Quarter: 2020Q1

REPORT INFORMATION
  Report Type: Report from Study
  Country: US (occurrence: US)
  Receive Date: 20200131
  Receipt Date: 20200131
  Transmission Date: 20200409
  Serious: Yes (Other)
  Sender: FDA-Public Use
  Company Number: US-INCYTE CORPORATION-2020IN000613

PATIENT

DRUGS (1)
  1. JAKAFI [Suspect]
     Active Substance: RUXOLITINIB
     Indication: POLYCYTHAEMIA VERA
     Dosage: 5 MILLIGRAM (2 TABLETS QAM AND 1.5 TABLETS QPM)
     Route: 048
     Dates: start: 20111209

REACTIONS (2)
  - Skin cancer [Unknown]
  - Wrong technique in product usage process [Unknown]
